FAERS Safety Report 8608076-2 (Version None)
Quarter: 2012Q3

REPORT INFORMATION
  Report Type: 
  Country: None (occurrence: None)
  Receive Date: 20120821
  Receipt Date: 20120815
  Transmission Date: 20120928
  Serious: Yes (Hospitalization, Other)
  Sender: FDA-Public Use
  Company Number: PHHY2012DE061151

PATIENT
  Sex: Female
  Weight: 70 kg

DRUGS (5)
  1. SIMVASTATIN [Concomitant]
     Dosage: 1 DF, QD
     Route: 048
     Dates: start: 20090101
  2. RASILEZ [Suspect]
     Dates: end: 20120601
  3. RASILEZ [Suspect]
     Indication: HYPERTENSION
     Dosage: 300 MG, DAILY
     Dates: start: 20110801
  4. ASPIRIN [Concomitant]
     Indication: CORONARY ARTERY DISEASE
     Dosage: 100 MG, QD
     Dates: start: 20090101
  5. HYDROCHLOROTHIAZIDE [Concomitant]
     Indication: HYPERTENSION
     Dosage: 250 MG, QD
     Route: 048
     Dates: start: 20090101

REACTIONS (9)
  - GENERALISED OEDEMA [None]
  - PRURITUS [None]
  - DYSPHAGIA [None]
  - SWOLLEN TONGUE [None]
  - URTICARIA [None]
  - SWELLING FACE [None]
  - DYSPNOEA [None]
  - OROPHARYNGEAL SWELLING [None]
  - SPEECH DISORDER [None]
